FAERS Safety Report 25393515 (Version 1)
Quarter: 2025Q2

REPORT INFORMATION
  Report Type: Spontaneous
  Country: IT (occurrence: IT)
  Receive Date: 20250604
  Receipt Date: 20250604
  Transmission Date: 20250717
  Serious: Yes (Death, Other)
  Sender: STRIDES
  Company Number: IT-STRIDES ARCOLAB LIMITED-2025SP006737

PATIENT
  Age: 90 Year

DRUGS (5)
  1. HYDROCORTISONE [Suspect]
     Active Substance: HYDROCORTISONE
     Indication: Arrhythmia
     Route: 065
     Dates: start: 20150114
  2. BISOPROLOL [Suspect]
     Active Substance: BISOPROLOL
     Indication: Arrhythmia
     Route: 065
     Dates: start: 20150114
  3. DOPAMINE [Suspect]
     Active Substance: DOPAMINE HYDROCHLORIDE
     Indication: Arrhythmia
     Route: 065
     Dates: start: 20150114
  4. ENOXAPARIN SODIUM [Concomitant]
     Active Substance: ENOXAPARIN SODIUM
     Indication: Anticoagulant therapy
     Route: 065
     Dates: start: 20150112
  5. COUMADIN [Concomitant]
     Active Substance: WARFARIN SODIUM
     Indication: Atrial fibrillation
     Route: 065

REACTIONS (1)
  - Drug ineffective for unapproved indication [Fatal]
